FAERS Safety Report 6649555-7 (Version None)
Quarter: 2010Q1

REPORT INFORMATION
  Report Type: 
  Country: None (occurrence: None)
  Receive Date: 20100324
  Receipt Date: 20100324
  Transmission Date: 20100710
  Serious: Yes (Other)
  Sender: FDA-Public Use
  Company Number: None

PATIENT
  Age: 61 Year
  Sex: Female
  Weight: 136.0791 kg

DRUGS (1)
  1. MICARDIS HCT [Suspect]
     Indication: HYPERTENSION
     Dosage: 80 MG 1 TABLET DAILY PO
     Route: 048
     Dates: start: 20080715, end: 20100228

REACTIONS (5)
  - ABASIA [None]
  - BACK PAIN [None]
  - MYALGIA [None]
  - WALKING AID USER [None]
  - WHEELCHAIR USER [None]
